FAERS Safety Report 15119817 (Version 48)
Quarter: 2023Q4

REPORT INFORMATION
  Report Type: Report from Study
  Country: CA (occurrence: CA)
  Receive Date: 20180709
  Receipt Date: 20231006
  Transmission Date: 20240109
  Serious: Yes (Other)
  Sender: FDA-Public Use
  Company Number: PHHY2017CA061325

PATIENT
  Age: 11 Year
  Sex: Male

DRUGS (44)
  1. ILARIS [Suspect]
     Active Substance: CANAKINUMAB
     Indication: Tumour necrosis factor receptor-associated periodic syndrome
     Dosage: 100 MG, EVERY 4 WEEKS
     Route: 058
     Dates: start: 20150126
  2. ILARIS [Suspect]
     Active Substance: CANAKINUMAB
     Dosage: 75 MG, EVERY 4 WEEKS
     Route: 058
     Dates: start: 20170422
  3. ILARIS [Suspect]
     Active Substance: CANAKINUMAB
     Dosage: UNK
     Route: 058
     Dates: start: 20170519
  4. ILARIS [Suspect]
     Active Substance: CANAKINUMAB
     Dosage: UNK
     Route: 058
     Dates: start: 20170615
  5. ILARIS [Suspect]
     Active Substance: CANAKINUMAB
     Dosage: UNK
     Route: 058
     Dates: start: 20170714
  6. ILARIS [Suspect]
     Active Substance: CANAKINUMAB
     Dosage: UNK
     Route: 058
     Dates: start: 20170810
  7. ILARIS [Suspect]
     Active Substance: CANAKINUMAB
     Dosage: UNK
     Route: 058
     Dates: start: 20170907
  8. ILARIS [Suspect]
     Active Substance: CANAKINUMAB
     Dosage: UNK
     Route: 058
     Dates: start: 20171005
  9. ILARIS [Suspect]
     Active Substance: CANAKINUMAB
     Dosage: UNK
     Route: 058
     Dates: start: 20171101
  10. ILARIS [Suspect]
     Active Substance: CANAKINUMAB
     Dosage: UNK
     Route: 058
     Dates: start: 20171129
  11. ILARIS [Suspect]
     Active Substance: CANAKINUMAB
     Dosage: 75 MG, EVERY 4 WEEKS
     Route: 058
     Dates: start: 20171230
  12. ILARIS [Suspect]
     Active Substance: CANAKINUMAB
     Dosage: 75 OT, EVERY 4 WEEKS
     Route: 058
     Dates: start: 20180131
  13. ILARIS [Suspect]
     Active Substance: CANAKINUMAB
     Dosage: 75 OT, EVERY 4 WEEKS
     Route: 058
     Dates: start: 20180228
  14. ILARIS [Suspect]
     Active Substance: CANAKINUMAB
     Dosage: 75 OT, EVERY 4 WEEKS
     Route: 058
     Dates: start: 20180324
  15. ILARIS [Suspect]
     Active Substance: CANAKINUMAB
     Dosage: 75 OT, EVERY 4 WEEKS
     Route: 058
     Dates: start: 20180423
  16. ILARIS [Suspect]
     Active Substance: CANAKINUMAB
     Dosage: 75 OT, QW
     Route: 058
     Dates: start: 20180525
  17. ILARIS [Suspect]
     Active Substance: CANAKINUMAB
     Dosage: 75 OT, QW
     Route: 058
     Dates: start: 20180626
  18. ILARIS [Suspect]
     Active Substance: CANAKINUMAB
     Dosage: 75 OT, QW
     Route: 058
     Dates: start: 20180723
  19. ILARIS [Suspect]
     Active Substance: CANAKINUMAB
     Dosage: UNK UNK, Q4W
     Route: 058
     Dates: start: 20180820
  20. ILARIS [Suspect]
     Active Substance: CANAKINUMAB
     Dosage: 75 OT, EVERY 4 WEEKS
     Route: 058
     Dates: start: 20180918
  21. ILARIS [Suspect]
     Active Substance: CANAKINUMAB
     Dosage: 75 OT, EVERY 4 WEEKS
     Route: 058
     Dates: start: 20181015
  22. ILARIS [Suspect]
     Active Substance: CANAKINUMAB
     Dosage: 75 OT, EVERY 4 WEEKS
     Route: 058
     Dates: start: 20181113
  23. ILARIS [Suspect]
     Active Substance: CANAKINUMAB
     Dosage: 75 OT, EVERY 4 WEEKS
     Route: 058
     Dates: start: 20181211
  24. ILARIS [Suspect]
     Active Substance: CANAKINUMAB
     Dosage: 75 OT, EVERY 4 WEEKS
     Route: 058
     Dates: start: 20190212
  25. ILARIS [Suspect]
     Active Substance: CANAKINUMAB
     Dosage: 75 OT, EVERY 4 WEEKS
     Route: 058
     Dates: start: 20190312
  26. ILARIS [Suspect]
     Active Substance: CANAKINUMAB
     Dosage: 75 MG, EVERY 4 WEEKS
     Route: 058
     Dates: start: 20190409
  27. ILARIS [Suspect]
     Active Substance: CANAKINUMAB
     Dosage: 75 MG, EVERY 4 WEEKS
     Route: 058
     Dates: start: 20190506
  28. ILARIS [Suspect]
     Active Substance: CANAKINUMAB
     Dosage: 75 MG, EVERY 4 WEEKS
     Route: 058
     Dates: start: 20190531
  29. ILARIS [Suspect]
     Active Substance: CANAKINUMAB
     Dosage: 75 MG, Q4W
     Route: 058
     Dates: start: 20190628
  30. ILARIS [Suspect]
     Active Substance: CANAKINUMAB
     Dosage: 75 MG, Q4W
     Route: 058
     Dates: start: 20190729
  31. ILARIS [Suspect]
     Active Substance: CANAKINUMAB
     Dosage: 75 MG, Q4W
     Route: 058
     Dates: start: 20190826
  32. ILARIS [Suspect]
     Active Substance: CANAKINUMAB
     Dosage: UNK
     Route: 058
     Dates: start: 20190923
  33. ILARIS [Suspect]
     Active Substance: CANAKINUMAB
     Dosage: 75 MG, Q4W
     Route: 058
     Dates: start: 20191021
  34. ILARIS [Suspect]
     Active Substance: CANAKINUMAB
     Dosage: 75 MG, EVERY 4 WEEKS
     Route: 058
     Dates: start: 20191216
  35. ILARIS [Suspect]
     Active Substance: CANAKINUMAB
     Dosage: 75 MG, EVERY 4 WEEKS
     Route: 058
     Dates: start: 20200113
  36. ILARIS [Suspect]
     Active Substance: CANAKINUMAB
     Dosage: 75 MG, EVERY 4 WEEKS
     Route: 058
     Dates: start: 20200210
  37. ILARIS [Suspect]
     Active Substance: CANAKINUMAB
     Dosage: 75 MG, EVERY 4 WEEKS
     Route: 058
     Dates: start: 20200310
  38. ILARIS [Suspect]
     Active Substance: CANAKINUMAB
     Dosage: 75 MG, Q4W
     Route: 058
     Dates: start: 20200407
  39. ILARIS [Suspect]
     Active Substance: CANAKINUMAB
     Dosage: 75 MG, Q4W
     Route: 058
     Dates: start: 20200505
  40. ILARIS [Suspect]
     Active Substance: CANAKINUMAB
     Dosage: 100 MG, Q4W
     Route: 058
     Dates: start: 20200629
  41. ILARIS [Suspect]
     Active Substance: CANAKINUMAB
     Dosage: 100 MG, Q4W
     Route: 058
     Dates: start: 20200727
  42. ILARIS [Suspect]
     Active Substance: CANAKINUMAB
     Dosage: 100 MG, EVERY 4 WEEKS
     Route: 058
     Dates: start: 20200824
  43. ILARIS [Suspect]
     Active Substance: CANAKINUMAB
     Dosage: 100 MG, EVERY 4 WEEKS
     Route: 058
     Dates: start: 20220207
  44. ILARIS [Suspect]
     Active Substance: CANAKINUMAB
     Dosage: 100 MG, EVERY 4 WEEKS
     Route: 058
     Dates: start: 20220307

REACTIONS (17)
  - Haematochezia [Unknown]
  - Blood pressure decreased [Unknown]
  - Body temperature decreased [Unknown]
  - Heart rate decreased [Unknown]
  - Headache [Recovered/Resolved]
  - Adenoidal hypertrophy [Unknown]
  - Rash [Unknown]
  - Abdominal discomfort [Unknown]
  - Nasal congestion [Unknown]
  - Rhinorrhoea [Recovered/Resolved]
  - Fatigue [Unknown]
  - Cough [Recovered/Resolved]
  - Pyrexia [Recovered/Resolved]
  - Influenza like illness [Recovered/Resolved]
  - SARS-CoV-2 test positive [Unknown]
  - Localised infection [Recovered/Resolved]
  - Nasopharyngitis [Unknown]

NARRATIVE: CASE EVENT DATE: 20170422
